FAERS Safety Report 22377408 (Version 1)
Quarter: 2023Q2

REPORT INFORMATION
  Report Type: Report from Study
  Country: MX (occurrence: MX)
  Receive Date: 20230529
  Receipt Date: 20230529
  Transmission Date: 20230722
  Serious: Yes (Other)
  Sender: FDA-Public Use
  Company Number: MX-002147023-NVSC2023MX120236

PATIENT
  Sex: Male

DRUGS (1)
  1. IMATINIB [Suspect]
     Active Substance: IMATINIB
     Indication: Product used for unknown indication
     Dosage: UNK
     Route: 065

REACTIONS (9)
  - Diabetes mellitus [Unknown]
  - Cholelithiasis [Unknown]
  - Bone pain [Unknown]
  - Discomfort [Unknown]
  - Malaise [Unknown]
  - Cytogenetic analysis abnormal [Unknown]
  - Impaired healing [Unknown]
  - Coagulopathy [Unknown]
  - Renal disorder [Unknown]
